FAERS Safety Report 17504586 (Version 3)
Quarter: 2020Q2

REPORT INFORMATION
  Report Type: Spontaneous
  Country: US (occurrence: US)
  Receive Date: 20200305
  Receipt Date: 20200617
  Transmission Date: 20200713
  Serious: No
  Sender: FDA-Public Use
  Company Number: US-PFIZER INC-2020098189

PATIENT
  Age: 80 Year
  Sex: Female

DRUGS (1)
  1. AROMASIN [Suspect]
     Active Substance: EXEMESTANE
     Indication: BREAST CANCER FEMALE
     Dosage: 25 MG, UNK

REACTIONS (2)
  - Gastrointestinal disorder [Not Recovered/Not Resolved]
  - Diarrhoea [Not Recovered/Not Resolved]
